FAERS Safety Report 17939664 (Version 1)
Quarter: 2020Q2

REPORT INFORMATION
  Report Type: Spontaneous
  Country: CN (occurrence: CN)
  Receive Date: 20200624
  Receipt Date: 20200624
  Transmission Date: 20200714
  Serious: Yes (Life-Threatening, Hospitalization, Other)
  Sender: FDA-Public Use
  Company Number: CN-ASTRAZENECA-2020SE80212

PATIENT
  Age: 54 Year
  Sex: Female

DRUGS (5)
  1. ZAVICEFTA [Suspect]
     Active Substance: AVIBACTAM SODIUM\CEFTAZIDIME
     Route: 065
     Dates: start: 20200606
  2. ZAVICEFTA [Suspect]
     Active Substance: AVIBACTAM SODIUM\CEFTAZIDIME
     Route: 065
  3. CASPOFUNGIN [Suspect]
     Active Substance: CASPOFUNGIN
     Route: 065
  4. TYGACIL [Suspect]
     Active Substance: TIGECYCLINE
     Route: 065
  5. SEROQUEL [Suspect]
     Active Substance: QUETIAPINE FUMARATE
     Route: 048

REACTIONS (9)
  - Blood creatinine increased [Unknown]
  - Klebsiella infection [Unknown]
  - Creatinine renal clearance abnormal [Unknown]
  - Respiratory tract haemorrhage [Unknown]
  - Hypotension [Unknown]
  - Abdominal infection [Unknown]
  - Thrombocytopenia [Not Recovered/Not Resolved]
  - Loss of consciousness [Unknown]
  - Coma [Unknown]

NARRATIVE: CASE EVENT DATE: 20200613
